FAERS Safety Report 6360198-5 (Version None)
Quarter: 2009Q3

REPORT INFORMATION
  Report Type: 
  Country: None (occurrence: None)
  Receive Date: 20090917
  Receipt Date: 20090910
  Transmission Date: 20100115
  Serious: Yes (Life-Threatening, Hospitalization, Other)
  Sender: FDA-Public Use
  Company Number: US-BAXTER-2008BH002419

PATIENT
  Age: 48 Year
  Sex: Female
  Weight: 48 kg

DRUGS (9)
  1. HEPARIN SODIUM INJECTION [Suspect]
     Indication: ANGIOPLASTY
     Dosage: DOSE UNIT:UNKNOWN
     Route: 041
     Dates: start: 20071210, end: 20071210
  2. HEPARIN SODIUM INJECTION [Suspect]
     Route: 041
     Dates: start: 20071212, end: 20071212
  3. HEPARIN SODIUM INJECTION [Suspect]
     Dosage: DOSE UNIT:UNKNOWN
     Route: 065
     Dates: start: 20071213, end: 20071214
  4. HEPARIN SODIUM INJECTION [Suspect]
     Dosage: DOSE UNIT:UNKNOWN
     Route: 041
     Dates: start: 20071214, end: 20071214
  5. HEPARIN SODIUM INJECTION [Suspect]
     Route: 065
     Dates: start: 20071201, end: 20071201
  6. HEPARIN SODIUM 5,000 UNITS IN DEXTROSE 5% [Suspect]
     Route: 042
     Dates: start: 20071201, end: 20071201
  7. HEPARIN SODIUM 1,000 UNITS AND SODIUM CHLORIDE 0.9% [Suspect]
     Route: 042
     Dates: start: 20071201, end: 20071201
  8. TORADOL [Concomitant]
     Indication: PAIN
     Route: 042
     Dates: start: 20071210, end: 20071215
  9. ASPIRIN [Concomitant]
     Indication: DRUG USE FOR UNKNOWN INDICATION
     Route: 065

REACTIONS (19)
  - ACUTE RESPIRATORY DISTRESS SYNDROME [None]
  - ANAEMIA [None]
  - ASPIRATION [None]
  - BLOOD CREATININE INCREASED [None]
  - CELLULITIS [None]
  - DIARRHOEA [None]
  - LYMPHADENOPATHY [None]
  - NAUSEA [None]
  - NEUTROPENIA [None]
  - PAIN IN EXTREMITY [None]
  - PERIPHERAL ARTERIAL OCCLUSIVE DISEASE [None]
  - POSTOPERATIVE WOUND INFECTION [None]
  - PULSE ABSENT [None]
  - PYREXIA [None]
  - RENAL FAILURE ACUTE [None]
  - RESPIRATORY FAILURE [None]
  - SEPTIC SHOCK [None]
  - THROMBOCYTOPENIA [None]
  - VOMITING [None]
